FAERS Safety Report 7990705-8 (Version None)
Quarter: 2011Q4

REPORT INFORMATION
  Report Type: 
  Country: None (occurrence: None)
  Receive Date: 20111219
  Receipt Date: 20111219
  Transmission Date: 20120403
  Serious: Yes (Life-Threatening, Other)
  Sender: FDA-Public Use
  Company Number: None

PATIENT
  Age: 12 Year
  Sex: Male
  Weight: 38.101 kg

DRUGS (3)
  1. TRAZODONE HCL [Concomitant]
     Route: 048
  2. ZOLOFT [Suspect]
     Indication: DEPRESSION
     Dosage: 25MG
     Route: 048
     Dates: start: 20111031, end: 20111126
  3. ZOLOFT [Concomitant]
     Dosage: 50MG
     Route: 048
     Dates: start: 20111127, end: 20111201

REACTIONS (4)
  - HALLUCINATION [None]
  - DEPRESSION [None]
  - INSOMNIA [None]
  - IRRITABILITY [None]
